FAERS Safety Report 6701023-X (Version None)
Quarter: 2010Q2

REPORT INFORMATION
  Report Type: 
  Country: None (occurrence: None)
  Receive Date: 20100428
  Receipt Date: 20100420
  Transmission Date: 20101027
  Serious: Yes (Hospitalization)
  Sender: FDA-Public Use
  Company Number: BR-SANOFI-AVENTIS-2010SA023460

PATIENT
  Age: 67 Year
  Sex: Female

DRUGS (7)
  1. LANTUS [Suspect]
     Route: 058
     Dates: start: 20070101
  2. METFORMIN [Concomitant]
     Route: 048
  3. NOVORAPID [Concomitant]
     Dosage: ACCORDING TO CARBOHYDRATE COUNT
     Route: 058
  4. PURAN T4 [Concomitant]
     Route: 048
  5. DIOVANE [Concomitant]
     Indication: BLOOD PRESSURE
     Dosage: 320/12.5 MG
     Route: 048
  6. HYDRALAZINE HCL [Concomitant]
     Indication: BLOOD PRESSURE
     Route: 048
  7. ASPIRIN [Concomitant]
     Indication: BLOOD PRESSURE
     Route: 048

REACTIONS (2)
  - CEREBROVASCULAR ACCIDENT [None]
  - HYPERGLYCAEMIA [None]
